FAERS Safety Report 22113349 (Version 43)
Quarter: 2024Q1

REPORT INFORMATION
  Report Type: Spontaneous
  Country: GB (occurrence: None)
  Receive Date: 20230320
  Receipt Date: 20240228
  Transmission Date: 20240410
  Serious: Yes (Hospitalization, Other)
  Sender: FDA-Public Use
  Company Number: GB-ABBVIE-4334866

PATIENT
  Age: 34 Year
  Sex: Female

DRUGS (384)
  1. METHOTREXATE [Suspect]
     Active Substance: METHOTREXATE
     Indication: Product used for unknown indication
  2. METHOTREXATE [Suspect]
     Active Substance: METHOTREXATE
  3. METHOTREXATE [Suspect]
     Active Substance: METHOTREXATE
  4. METHOTREXATE [Suspect]
     Active Substance: METHOTREXATE
  5. METHOTREXATE [Suspect]
     Active Substance: METHOTREXATE
  6. METHOTREXATE [Suspect]
     Active Substance: METHOTREXATE
  7. METHOTREXATE [Suspect]
     Active Substance: METHOTREXATE
  8. METHOTREXATE [Suspect]
     Active Substance: METHOTREXATE
  9. METHOTREXATE [Suspect]
     Active Substance: METHOTREXATE
  10. METHOTREXATE [Suspect]
     Active Substance: METHOTREXATE
  11. METHOTREXATE [Suspect]
     Active Substance: METHOTREXATE
  12. METHOTREXATE [Suspect]
     Active Substance: METHOTREXATE
  13. METHOTREXATE [Suspect]
     Active Substance: METHOTREXATE
  14. METHOTREXATE [Suspect]
     Active Substance: METHOTREXATE
  15. METHOTREXATE [Suspect]
     Active Substance: METHOTREXATE
  16. METHOTREXATE [Suspect]
     Active Substance: METHOTREXATE
     Dates: start: 20211112
  17. METHOTREXATE [Suspect]
     Active Substance: METHOTREXATE
     Dates: start: 20211211
  18. METHOTREXATE [Suspect]
     Active Substance: METHOTREXATE
  19. METHOTREXATE [Suspect]
     Active Substance: METHOTREXATE
  20. METHOTREXATE [Suspect]
     Active Substance: METHOTREXATE
     Dates: start: 20211112
  21. METHOTREXATE [Suspect]
     Active Substance: METHOTREXATE
     Dates: start: 20211112
  22. METHOTREXATE [Suspect]
     Active Substance: METHOTREXATE
  23. METHOTREXATE [Suspect]
     Active Substance: METHOTREXATE
  24. METHOTREXATE [Suspect]
     Active Substance: METHOTREXATE
  25. METHOTREXATE [Suspect]
     Active Substance: METHOTREXATE
  26. METHOTREXATE [Suspect]
     Active Substance: METHOTREXATE
  27. METHOTREXATE [Suspect]
     Active Substance: METHOTREXATE
  28. METHOTREXATE [Suspect]
     Active Substance: METHOTREXATE
  29. METHOTREXATE [Suspect]
     Active Substance: METHOTREXATE
  30. METHOTREXATE [Suspect]
     Active Substance: METHOTREXATE
  31. METHOTREXATE [Suspect]
     Active Substance: METHOTREXATE
  32. METHOTREXATE [Suspect]
     Active Substance: METHOTREXATE
  33. METHOTREXATE [Suspect]
     Active Substance: METHOTREXATE
  34. METHOTREXATE [Suspect]
     Active Substance: METHOTREXATE
  35. METHOTREXATE [Suspect]
     Active Substance: METHOTREXATE
  36. METHOTREXATE [Suspect]
     Active Substance: METHOTREXATE
  37. METHOTREXATE [Suspect]
     Active Substance: METHOTREXATE
  38. METHOTREXATE [Suspect]
     Active Substance: METHOTREXATE
  39. METHOTREXATE [Suspect]
     Active Substance: METHOTREXATE
  40. METHOTREXATE [Suspect]
     Active Substance: METHOTREXATE
  41. METHOTREXATE [Suspect]
     Active Substance: METHOTREXATE
  42. METHOTREXATE [Suspect]
     Active Substance: METHOTREXATE
  43. METHOTREXATE [Suspect]
     Active Substance: METHOTREXATE
  44. METHOTREXATE [Suspect]
     Active Substance: METHOTREXATE
  45. METHOTREXATE [Suspect]
     Active Substance: METHOTREXATE
  46. METHOTREXATE [Suspect]
     Active Substance: METHOTREXATE
  47. METHOTREXATE [Suspect]
     Active Substance: METHOTREXATE
  48. METHOTREXATE [Suspect]
     Active Substance: METHOTREXATE
  49. METHOTREXATE [Suspect]
     Active Substance: METHOTREXATE
  50. METHOTREXATE [Suspect]
     Active Substance: METHOTREXATE
  51. METHOTREXATE [Suspect]
     Active Substance: METHOTREXATE
  52. METHOTREXATE [Suspect]
     Active Substance: METHOTREXATE
     Dates: start: 20211211
  53. METHOTREXATE [Suspect]
     Active Substance: METHOTREXATE
  54. VEDOLIZUMAB [Suspect]
     Active Substance: VEDOLIZUMAB
     Indication: Crohn^s disease
  55. VEDOLIZUMAB [Suspect]
     Active Substance: VEDOLIZUMAB
     Indication: Crohn^s disease
  56. VEDOLIZUMAB [Suspect]
     Active Substance: VEDOLIZUMAB
  57. VEDOLIZUMAB [Suspect]
     Active Substance: VEDOLIZUMAB
  58. VEDOLIZUMAB [Suspect]
     Active Substance: VEDOLIZUMAB
  59. VEDOLIZUMAB [Suspect]
     Active Substance: VEDOLIZUMAB
  60. VEDOLIZUMAB [Suspect]
     Active Substance: VEDOLIZUMAB
  61. VEDOLIZUMAB [Suspect]
     Active Substance: VEDOLIZUMAB
  62. VEDOLIZUMAB [Suspect]
     Active Substance: VEDOLIZUMAB
  63. VEDOLIZUMAB [Suspect]
     Active Substance: VEDOLIZUMAB
  64. VEDOLIZUMAB [Suspect]
     Active Substance: VEDOLIZUMAB
  65. VEDOLIZUMAB [Suspect]
     Active Substance: VEDOLIZUMAB
  66. VEDOLIZUMAB [Suspect]
     Active Substance: VEDOLIZUMAB
  67. VEDOLIZUMAB [Suspect]
     Active Substance: VEDOLIZUMAB
  68. VEDOLIZUMAB [Suspect]
     Active Substance: VEDOLIZUMAB
  69. VEDOLIZUMAB [Suspect]
     Active Substance: VEDOLIZUMAB
  70. VEDOLIZUMAB [Suspect]
     Active Substance: VEDOLIZUMAB
  71. VEDOLIZUMAB [Suspect]
     Active Substance: VEDOLIZUMAB
  72. VEDOLIZUMAB [Suspect]
     Active Substance: VEDOLIZUMAB
  73. VEDOLIZUMAB [Suspect]
     Active Substance: VEDOLIZUMAB
  74. VEDOLIZUMAB [Suspect]
     Active Substance: VEDOLIZUMAB
  75. VEDOLIZUMAB [Suspect]
     Active Substance: VEDOLIZUMAB
  76. VEDOLIZUMAB [Suspect]
     Active Substance: VEDOLIZUMAB
  77. VEDOLIZUMAB [Suspect]
     Active Substance: VEDOLIZUMAB
  78. VEDOLIZUMAB [Suspect]
     Active Substance: VEDOLIZUMAB
  79. VEDOLIZUMAB [Suspect]
     Active Substance: VEDOLIZUMAB
  80. VEDOLIZUMAB [Suspect]
     Active Substance: VEDOLIZUMAB
  81. VEDOLIZUMAB [Suspect]
     Active Substance: VEDOLIZUMAB
  82. VEDOLIZUMAB [Suspect]
     Active Substance: VEDOLIZUMAB
  83. VEDOLIZUMAB [Suspect]
     Active Substance: VEDOLIZUMAB
  84. VEDOLIZUMAB [Suspect]
     Active Substance: VEDOLIZUMAB
  85. VEDOLIZUMAB [Suspect]
     Active Substance: VEDOLIZUMAB
  86. VEDOLIZUMAB [Suspect]
     Active Substance: VEDOLIZUMAB
  87. VEDOLIZUMAB [Suspect]
     Active Substance: VEDOLIZUMAB
  88. VEDOLIZUMAB [Suspect]
     Active Substance: VEDOLIZUMAB
  89. VEDOLIZUMAB [Suspect]
     Active Substance: VEDOLIZUMAB
  90. VEDOLIZUMAB [Suspect]
     Active Substance: VEDOLIZUMAB
  91. VEDOLIZUMAB [Suspect]
     Active Substance: VEDOLIZUMAB
  92. VEDOLIZUMAB [Suspect]
     Active Substance: VEDOLIZUMAB
  93. VEDOLIZUMAB [Suspect]
     Active Substance: VEDOLIZUMAB
  94. VEDOLIZUMAB [Suspect]
     Active Substance: VEDOLIZUMAB
  95. VEDOLIZUMAB [Suspect]
     Active Substance: VEDOLIZUMAB
     Dates: start: 20211112
  96. VEDOLIZUMAB [Suspect]
     Active Substance: VEDOLIZUMAB
  97. VEDOLIZUMAB [Suspect]
     Active Substance: VEDOLIZUMAB
  98. VEDOLIZUMAB [Suspect]
     Active Substance: VEDOLIZUMAB
  99. VEDOLIZUMAB [Suspect]
     Active Substance: VEDOLIZUMAB
  100. VEDOLIZUMAB [Suspect]
     Active Substance: VEDOLIZUMAB
  101. VEDOLIZUMAB [Suspect]
     Active Substance: VEDOLIZUMAB
  102. VEDOLIZUMAB [Suspect]
     Active Substance: VEDOLIZUMAB
  103. VEDOLIZUMAB [Suspect]
     Active Substance: VEDOLIZUMAB
  104. VEDOLIZUMAB [Suspect]
     Active Substance: VEDOLIZUMAB
  105. VEDOLIZUMAB [Suspect]
     Active Substance: VEDOLIZUMAB
  106. RIFAXIMIN [Suspect]
     Active Substance: RIFAXIMIN
     Indication: Product used for unknown indication
  107. RIFAXIMIN [Suspect]
     Active Substance: RIFAXIMIN
  108. RIFAXIMIN [Suspect]
     Active Substance: RIFAXIMIN
  109. RIFAXIMIN [Suspect]
     Active Substance: RIFAXIMIN
  110. RIFAXIMIN [Suspect]
     Active Substance: RIFAXIMIN
  111. RIFAXIMIN [Suspect]
     Active Substance: RIFAXIMIN
  112. RIFAXIMIN [Suspect]
     Active Substance: RIFAXIMIN
  113. RIFAXIMIN [Suspect]
     Active Substance: RIFAXIMIN
  114. RIFAXIMIN [Suspect]
     Active Substance: RIFAXIMIN
  115. RIFAXIMIN [Suspect]
     Active Substance: RIFAXIMIN
  116. RIFAXIMIN [Suspect]
     Active Substance: RIFAXIMIN
  117. RIFAXIMIN [Suspect]
     Active Substance: RIFAXIMIN
  118. RIFAXIMIN [Suspect]
     Active Substance: RIFAXIMIN
  119. RIFAXIMIN [Suspect]
     Active Substance: RIFAXIMIN
  120. RIFAXIMIN [Suspect]
     Active Substance: RIFAXIMIN
  121. RIFAXIMIN [Suspect]
     Active Substance: RIFAXIMIN
  122. RIFAXIMIN [Suspect]
     Active Substance: RIFAXIMIN
  123. RIFAXIMIN [Suspect]
     Active Substance: RIFAXIMIN
  124. RIFAXIMIN [Suspect]
     Active Substance: RIFAXIMIN
  125. RIFAXIMIN [Suspect]
     Active Substance: RIFAXIMIN
  126. RIFAXIMIN [Suspect]
     Active Substance: RIFAXIMIN
  127. RIFAXIMIN [Suspect]
     Active Substance: RIFAXIMIN
  128. RIFAXIMIN [Suspect]
     Active Substance: RIFAXIMIN
  129. RIFAXIMIN [Suspect]
     Active Substance: RIFAXIMIN
  130. RIFAXIMIN [Suspect]
     Active Substance: RIFAXIMIN
  131. RIFAXIMIN [Suspect]
     Active Substance: RIFAXIMIN
  132. RIFAXIMIN [Suspect]
     Active Substance: RIFAXIMIN
  133. RIFAXIMIN [Suspect]
     Active Substance: RIFAXIMIN
  134. RIFAXIMIN [Suspect]
     Active Substance: RIFAXIMIN
  135. RIFAXIMIN [Suspect]
     Active Substance: RIFAXIMIN
  136. RIFAXIMIN [Suspect]
     Active Substance: RIFAXIMIN
  137. RIFAXIMIN [Suspect]
     Active Substance: RIFAXIMIN
  138. RIFAXIMIN [Suspect]
     Active Substance: RIFAXIMIN
  139. RIFAXIMIN [Suspect]
     Active Substance: RIFAXIMIN
  140. RIFAXIMIN [Suspect]
     Active Substance: RIFAXIMIN
  141. RIFAXIMIN [Suspect]
     Active Substance: RIFAXIMIN
  142. RIFAXIMIN [Suspect]
     Active Substance: RIFAXIMIN
  143. RIFAXIMIN [Suspect]
     Active Substance: RIFAXIMIN
  144. RIFAXIMIN [Suspect]
     Active Substance: RIFAXIMIN
  145. RIFAXIMIN [Suspect]
     Active Substance: RIFAXIMIN
  146. RIFAXIMIN [Suspect]
     Active Substance: RIFAXIMIN
  147. RIFAXIMIN [Suspect]
     Active Substance: RIFAXIMIN
  148. RIFAXIMIN [Suspect]
     Active Substance: RIFAXIMIN
  149. RIFAXIMIN [Suspect]
     Active Substance: RIFAXIMIN
  150. RIFAXIMIN [Suspect]
     Active Substance: RIFAXIMIN
  151. RIFAXIMIN [Suspect]
     Active Substance: RIFAXIMIN
  152. RIFAXIMIN [Suspect]
     Active Substance: RIFAXIMIN
  153. RIFAXIMIN [Suspect]
     Active Substance: RIFAXIMIN
  154. RIFAXIMIN [Suspect]
     Active Substance: RIFAXIMIN
  155. ADALIMUMAB [Suspect]
     Active Substance: ADALIMUMAB\ISOPROPYL ALCOHOL
     Indication: Crohn^s disease
  156. ADALIMUMAB [Suspect]
     Active Substance: ADALIMUMAB\ISOPROPYL ALCOHOL
     Indication: Crohn^s disease
     Dosage: 1 UNIT, SINGLE DOSE PEN, UNIT EQUAL TO SURE CLICK
  157. ADALIMUMAB [Suspect]
     Active Substance: ADALIMUMAB\ISOPROPYL ALCOHOL
     Dosage: SINGLE DOSE PEN, UNIT EQUAL TO SURE CLICK
  158. ADALIMUMAB [Suspect]
     Active Substance: ADALIMUMAB\ISOPROPYL ALCOHOL
     Dosage: 1 UNIT, SINGLE DOSE PEN, UNIT EQUAL TO SURE CLICK
  159. ADALIMUMAB [Suspect]
     Active Substance: ADALIMUMAB\ISOPROPYL ALCOHOL
     Dosage: (SINGLE DOSE PEN, UNIT EQUAL TO SURE CLICK)
  160. ADALIMUMAB [Suspect]
     Active Substance: ADALIMUMAB\ISOPROPYL ALCOHOL
  161. ADALIMUMAB [Suspect]
     Active Substance: ADALIMUMAB\ISOPROPYL ALCOHOL
  162. ADALIMUMAB [Suspect]
     Active Substance: ADALIMUMAB\ISOPROPYL ALCOHOL
     Dosage: SINGLE DOSE PEN
  163. ADALIMUMAB [Suspect]
     Active Substance: ADALIMUMAB\ISOPROPYL ALCOHOL
  164. ADALIMUMAB [Suspect]
     Active Substance: ADALIMUMAB\ISOPROPYL ALCOHOL
     Dosage: (SINGLE DOSE PEN, UNIT EQUAL TO SURE CLICK)
  165. ADALIMUMAB [Suspect]
     Active Substance: ADALIMUMAB\ISOPROPYL ALCOHOL
     Dosage: (1 UNIT, SINGLE DOSE PEN, UNIT EQUAL TO SURE CLICK)
  166. ADALIMUMAB [Suspect]
     Active Substance: ADALIMUMAB\ISOPROPYL ALCOHOL
     Dosage: (SINGLE DOSE PEN, UNIT EQUAL TO SURE CLICK)
  167. ADALIMUMAB [Suspect]
     Active Substance: ADALIMUMAB\ISOPROPYL ALCOHOL
     Dosage: 1 UNIT
  168. ADALIMUMAB [Suspect]
     Active Substance: ADALIMUMAB\ISOPROPYL ALCOHOL
  169. ADALIMUMAB [Suspect]
     Active Substance: ADALIMUMAB\ISOPROPYL ALCOHOL
     Dosage: (1 UNIT, SINGLE DOSE PEN, UNIT EQUAL TO SURE CLICK)
  170. ADALIMUMAB [Suspect]
     Active Substance: ADALIMUMAB\ISOPROPYL ALCOHOL
     Dosage: (1 UNIT, SINGLE DOSE PEN, UNIT EQUAL TO SURE CLICK)
  171. ADALIMUMAB [Suspect]
     Active Substance: ADALIMUMAB\ISOPROPYL ALCOHOL
     Dosage: SINGLE DOSE PEN, UNIT EQUAL TO SURE CLICK
  172. ADALIMUMAB [Suspect]
     Active Substance: ADALIMUMAB\ISOPROPYL ALCOHOL
  173. ADALIMUMAB [Suspect]
     Active Substance: ADALIMUMAB\ISOPROPYL ALCOHOL
     Dosage: ADALIMUMAB SOLUTION FOR INJECTION, SINGLE DOSE PEN DOSAGE1: UNIT SURECLICK DOSAGE2: UNIT SURECLICK D
  174. ADALIMUMAB [Suspect]
     Active Substance: ADALIMUMAB\ISOPROPYL ALCOHOL
     Dosage: ADALIMUMAB SOLUTION FOR INJECTION, SINGLE DOSE PEN DOSAGE1: UNIT SURECLICK DOSAGE2: UNIT SURECLICK D
  175. ADALIMUMAB [Suspect]
     Active Substance: ADALIMUMAB\ISOPROPYL ALCOHOL
     Dosage: UNK (1 UNIT, SINGLE DOSE PEN, UNIT EQUAL TO SURE CLICK)
  176. ADALIMUMAB [Suspect]
     Active Substance: ADALIMUMAB\ISOPROPYL ALCOHOL
     Dosage: ADALIMUMAB SOLUTION FOR INJECTION, SINGLE DOSE PEN DOSAGE1: UNIT SURECLICK DOSAGE2: UNIT SURECLICK D
  177. ADALIMUMAB [Suspect]
     Active Substance: ADALIMUMAB\ISOPROPYL ALCOHOL
     Dosage: ADALIMUMAB SOLUTION FOR INJECTION, SINGLE DOSE PEN DOSAGE1: UNIT SURECLICK DOSAGE2: UNIT SURECLICK D
  178. ADALIMUMAB [Suspect]
     Active Substance: ADALIMUMAB\ISOPROPYL ALCOHOL
     Dosage: UNK (1 UNIT, SINGLE DOSE PEN, UNIT EQUAL TO SURE CLICK)
  179. ADALIMUMAB [Suspect]
     Active Substance: ADALIMUMAB\ISOPROPYL ALCOHOL
     Dosage: UNK (1 UNIT, SINGLE DOSE PEN, UNIT EQUAL TO SURE CLICK)
  180. ADALIMUMAB [Suspect]
     Active Substance: ADALIMUMAB\ISOPROPYL ALCOHOL
     Dosage: UNK (1 UNIT, SINGLE DOSE PEN, UNIT EQUAL TO SURE CLICK)
  181. ADALIMUMAB [Suspect]
     Active Substance: ADALIMUMAB\ISOPROPYL ALCOHOL
     Dosage: UNK (1 UNIT, SINGLE DOSE PEN, UNIT EQUAL TO SURE CLICK)
  182. ADALIMUMAB [Suspect]
     Active Substance: ADALIMUMAB\ISOPROPYL ALCOHOL
     Dosage: UNK (1 UNIT, SINGLE DOSE PEN, UNIT EQUAL TO SURE CLICK)
  183. ADALIMUMAB [Suspect]
     Active Substance: ADALIMUMAB\ISOPROPYL ALCOHOL
     Dosage: UNK (1 UNIT, SINGLE DOSE PEN, UNIT EQUAL TO SURE CLICK)
  184. ADALIMUMAB [Suspect]
     Active Substance: ADALIMUMAB\ISOPROPYL ALCOHOL
     Dosage: UNK (1 UNIT, SINGLE DOSE PEN, UNIT EQUAL TO SURE CLICK)
  185. ADALIMUMAB [Suspect]
     Active Substance: ADALIMUMAB\ISOPROPYL ALCOHOL
     Dosage: UNK (1 UNIT, SINGLE DOSE PEN, UNIT EQUAL TO SURE CLICK)
  186. ADALIMUMAB [Suspect]
     Active Substance: ADALIMUMAB\ISOPROPYL ALCOHOL
     Dosage: UNK (1 UNIT, SINGLE DOSE PEN, UNIT EQUAL TO SURE CLICK)
  187. ADALIMUMAB [Suspect]
     Active Substance: ADALIMUMAB\ISOPROPYL ALCOHOL
     Dosage: UNK (1 UNIT, SINGLE DOSE PEN, UNIT EQUAL TO SURE CLICK)
  188. ADALIMUMAB [Suspect]
     Active Substance: ADALIMUMAB\ISOPROPYL ALCOHOL
     Dosage: UNK (1 UNIT, SINGLE DOSE PEN, UNIT EQUAL TO SURE CLICK)
  189. ADALIMUMAB [Suspect]
     Active Substance: ADALIMUMAB\ISOPROPYL ALCOHOL
  190. ADALIMUMAB [Suspect]
     Active Substance: ADALIMUMAB\ISOPROPYL ALCOHOL
  191. ADALIMUMAB [Suspect]
     Active Substance: ADALIMUMAB\ISOPROPYL ALCOHOL
  192. ADALIMUMAB [Suspect]
     Active Substance: ADALIMUMAB\ISOPROPYL ALCOHOL
     Dosage: UNK (1 UNIT, SINGLE DOSE PEN, UNIT EQUAL TO SURE CLICK)
  193. ENTYVIO [Suspect]
     Active Substance: VEDOLIZUMAB
     Indication: Crohn^s disease
  194. ENTYVIO [Suspect]
     Active Substance: VEDOLIZUMAB
  195. ENTYVIO [Suspect]
     Active Substance: VEDOLIZUMAB
  196. ENTYVIO [Suspect]
     Active Substance: VEDOLIZUMAB
  197. ENTYVIO [Suspect]
     Active Substance: VEDOLIZUMAB
  198. ENTYVIO [Suspect]
     Active Substance: VEDOLIZUMAB
  199. ENTYVIO [Suspect]
     Active Substance: VEDOLIZUMAB
  200. ENTYVIO [Suspect]
     Active Substance: VEDOLIZUMAB
  201. ENTYVIO [Suspect]
     Active Substance: VEDOLIZUMAB
  202. ENTYVIO [Suspect]
     Active Substance: VEDOLIZUMAB
     Dosage: SINGLE DOSE PEN
  203. ENTYVIO [Suspect]
     Active Substance: VEDOLIZUMAB
  204. ENTYVIO [Suspect]
     Active Substance: VEDOLIZUMAB
     Dosage: SINGLE DOSE PEN
  205. ENTYVIO [Suspect]
     Active Substance: VEDOLIZUMAB
     Dosage: SINGLE DOSE PEN
  206. ENTYVIO [Suspect]
     Active Substance: VEDOLIZUMAB
     Dosage: SINGLE DOSE PEN
  207. ENTYVIO [Suspect]
     Active Substance: VEDOLIZUMAB
     Dosage: SINGLE DOSE PEN
  208. ENTYVIO [Suspect]
     Active Substance: VEDOLIZUMAB
     Dosage: SINGLE DOSE PEN
  209. ENTYVIO [Suspect]
     Active Substance: VEDOLIZUMAB
     Dosage: SINGLE DOSE PEN
  210. ENTYVIO [Suspect]
     Active Substance: VEDOLIZUMAB
     Dosage: SINGLE DOSE PEN
  211. ENTYVIO [Suspect]
     Active Substance: VEDOLIZUMAB
     Dosage: SINGLE DOSE PEN
  212. ENTYVIO [Suspect]
     Active Substance: VEDOLIZUMAB
     Dosage: SINGLE DOSE PEN
  213. ENTYVIO [Suspect]
     Active Substance: VEDOLIZUMAB
     Dosage: SINGLE DOSE PEN
  214. ENTYVIO [Suspect]
     Active Substance: VEDOLIZUMAB
     Dosage: SINGLE DOSE PEN
  215. ENTYVIO [Suspect]
     Active Substance: VEDOLIZUMAB
     Dosage: SINGLE DOSE PEN
  216. ENTYVIO [Suspect]
     Active Substance: VEDOLIZUMAB
     Dosage: SINGLE DOSE PEN
  217. ENTYVIO [Suspect]
     Active Substance: VEDOLIZUMAB
     Dosage: SINGLE DOSE PEN
  218. ENTYVIO [Suspect]
     Active Substance: VEDOLIZUMAB
     Dosage: UNKNOWN, UNK, SINGLE DOSE PEN
  219. ENTYVIO [Suspect]
     Active Substance: VEDOLIZUMAB
     Dosage: UNKNOWN, UNK, SINGLE DOSE PEN
  220. ENTYVIO [Suspect]
     Active Substance: VEDOLIZUMAB
     Dosage: UNKNOWN, UNK, SINGLE DOSE PEN
  221. ENTYVIO [Suspect]
     Active Substance: VEDOLIZUMAB
     Dosage: UNKNOWN, UNK, SINGLE DOSE PEN
  222. ENTYVIO [Suspect]
     Active Substance: VEDOLIZUMAB
     Dosage: UNKNOWN, UNK, SINGLE DOSE PEN
  223. ENTYVIO [Suspect]
     Active Substance: VEDOLIZUMAB
     Dosage: UNKNOWN, UNK, SINGLE DOSE PEN
  224. ENTYVIO [Suspect]
     Active Substance: VEDOLIZUMAB
     Dosage: UNKNOWN, UNK, SINGLE DOSE PEN
  225. ENTYVIO [Suspect]
     Active Substance: VEDOLIZUMAB
     Dosage: UNKNOWN, UNK, SINGLE DOSE PEN
  226. ENTYVIO [Suspect]
     Active Substance: VEDOLIZUMAB
     Dosage: UNKNOWN, UNK, SINGLE DOSE PEN
  227. ENTYVIO [Suspect]
     Active Substance: VEDOLIZUMAB
     Dosage: UNKNOWN, UNK, SINGLE DOSE PEN
  228. ENTYVIO [Suspect]
     Active Substance: VEDOLIZUMAB
     Dosage: UNKNOWN, UNK, SINGLE DOSE PEN
  229. ENTYVIO [Suspect]
     Active Substance: VEDOLIZUMAB
     Dosage: UNKNOWN, UNK, SINGLE DOSE PEN
  230. ENTYVIO [Suspect]
     Active Substance: VEDOLIZUMAB
  231. ENTYVIO [Suspect]
     Active Substance: VEDOLIZUMAB
  232. ENTYVIO [Suspect]
     Active Substance: VEDOLIZUMAB
  233. ENTYVIO [Suspect]
     Active Substance: VEDOLIZUMAB
     Dosage: SINGLE DOSE PEN
  234. ENTYVIO [Suspect]
     Active Substance: VEDOLIZUMAB
  235. REMICADE [Suspect]
     Active Substance: INFLIXIMAB
     Indication: Crohn^s disease
  236. REMICADE [Suspect]
     Active Substance: INFLIXIMAB
  237. REMICADE [Suspect]
     Active Substance: INFLIXIMAB
  238. REMICADE [Suspect]
     Active Substance: INFLIXIMAB
  239. REMICADE [Suspect]
     Active Substance: INFLIXIMAB
  240. REMICADE [Suspect]
     Active Substance: INFLIXIMAB
  241. REMICADE [Suspect]
     Active Substance: INFLIXIMAB
  242. REMICADE [Suspect]
     Active Substance: INFLIXIMAB
  243. REMICADE [Suspect]
     Active Substance: INFLIXIMAB
  244. REMICADE [Suspect]
     Active Substance: INFLIXIMAB
  245. REMICADE [Suspect]
     Active Substance: INFLIXIMAB
  246. REMICADE [Suspect]
     Active Substance: INFLIXIMAB
  247. REMICADE [Suspect]
     Active Substance: INFLIXIMAB
  248. REMICADE [Suspect]
     Active Substance: INFLIXIMAB
  249. REMICADE [Suspect]
     Active Substance: INFLIXIMAB
  250. REMICADE [Suspect]
     Active Substance: INFLIXIMAB
  251. REMICADE [Suspect]
     Active Substance: INFLIXIMAB
  252. REMICADE [Suspect]
     Active Substance: INFLIXIMAB
  253. REMICADE [Suspect]
     Active Substance: INFLIXIMAB
  254. REMICADE [Suspect]
     Active Substance: INFLIXIMAB
  255. REMICADE [Suspect]
     Active Substance: INFLIXIMAB
  256. REMICADE [Suspect]
     Active Substance: INFLIXIMAB
  257. REMICADE [Suspect]
     Active Substance: INFLIXIMAB
  258. REMICADE [Suspect]
     Active Substance: INFLIXIMAB
  259. REMICADE [Suspect]
     Active Substance: INFLIXIMAB
  260. REMICADE [Suspect]
     Active Substance: INFLIXIMAB
  261. REMICADE [Suspect]
     Active Substance: INFLIXIMAB
  262. REMICADE [Suspect]
     Active Substance: INFLIXIMAB
  263. REMICADE [Suspect]
     Active Substance: INFLIXIMAB
  264. REMICADE [Suspect]
     Active Substance: INFLIXIMAB
  265. REMICADE [Suspect]
     Active Substance: INFLIXIMAB
  266. REMICADE [Suspect]
     Active Substance: INFLIXIMAB
  267. REMICADE [Suspect]
     Active Substance: INFLIXIMAB
  268. REMICADE [Suspect]
     Active Substance: INFLIXIMAB
  269. REMICADE [Suspect]
     Active Substance: INFLIXIMAB
  270. REMICADE [Suspect]
     Active Substance: INFLIXIMAB
  271. REMICADE [Suspect]
     Active Substance: INFLIXIMAB
  272. REMICADE [Suspect]
     Active Substance: INFLIXIMAB
  273. REMICADE [Suspect]
     Active Substance: INFLIXIMAB
  274. REMICADE [Suspect]
     Active Substance: INFLIXIMAB
  275. INFLIXIMAB [Suspect]
     Active Substance: INFLIXIMAB
     Indication: Crohn^s disease
  276. INFLIXIMAB [Suspect]
     Active Substance: INFLIXIMAB
  277. INFLIXIMAB [Suspect]
     Active Substance: INFLIXIMAB
  278. INFLIXIMAB [Suspect]
     Active Substance: INFLIXIMAB
  279. INFLIXIMAB [Suspect]
     Active Substance: INFLIXIMAB
  280. INFLIXIMAB [Suspect]
     Active Substance: INFLIXIMAB
  281. INFLIXIMAB [Suspect]
     Active Substance: INFLIXIMAB
  282. INFLIXIMAB [Suspect]
     Active Substance: INFLIXIMAB
  283. INFLIXIMAB [Suspect]
     Active Substance: INFLIXIMAB
  284. INFLIXIMAB [Suspect]
     Active Substance: INFLIXIMAB
  285. INFLIXIMAB [Suspect]
     Active Substance: INFLIXIMAB
  286. INFLIXIMAB [Suspect]
     Active Substance: INFLIXIMAB
  287. INFLIXIMAB [Suspect]
     Active Substance: INFLIXIMAB
  288. INFLIXIMAB [Suspect]
     Active Substance: INFLIXIMAB
  289. INFLIXIMAB [Suspect]
     Active Substance: INFLIXIMAB
  290. INFLIXIMAB [Suspect]
     Active Substance: INFLIXIMAB
  291. INFLIXIMAB [Suspect]
     Active Substance: INFLIXIMAB
  292. INFLIXIMAB [Suspect]
     Active Substance: INFLIXIMAB
  293. INFLIXIMAB [Suspect]
     Active Substance: INFLIXIMAB
  294. INFLIXIMAB [Suspect]
     Active Substance: INFLIXIMAB
  295. INFLIXIMAB [Suspect]
     Active Substance: INFLIXIMAB
  296. INFLIXIMAB [Suspect]
     Active Substance: INFLIXIMAB
  297. INFLIXIMAB [Suspect]
     Active Substance: INFLIXIMAB
  298. INFLIXIMAB [Suspect]
     Active Substance: INFLIXIMAB
  299. INFLIXIMAB [Suspect]
     Active Substance: INFLIXIMAB
  300. INFLIXIMAB [Suspect]
     Active Substance: INFLIXIMAB
  301. INFLIXIMAB [Suspect]
     Active Substance: INFLIXIMAB
  302. INFLIXIMAB [Suspect]
     Active Substance: INFLIXIMAB
  303. INFLIXIMAB [Suspect]
     Active Substance: INFLIXIMAB
  304. INFLIXIMAB [Suspect]
     Active Substance: INFLIXIMAB
  305. INFLIXIMAB [Suspect]
     Active Substance: INFLIXIMAB
  306. INFLIXIMAB [Suspect]
     Active Substance: INFLIXIMAB
  307. INFLIXIMAB [Suspect]
     Active Substance: INFLIXIMAB
  308. INFLIXIMAB [Suspect]
     Active Substance: INFLIXIMAB
  309. INFLIXIMAB [Suspect]
     Active Substance: INFLIXIMAB
  310. INFLIXIMAB [Suspect]
     Active Substance: INFLIXIMAB
  311. INFLIXIMAB [Suspect]
     Active Substance: INFLIXIMAB
  312. INFLIXIMAB [Suspect]
     Active Substance: INFLIXIMAB
  313. INFLIXIMAB [Suspect]
     Active Substance: INFLIXIMAB
  314. INFLIXIMAB [Suspect]
     Active Substance: INFLIXIMAB
  315. INFLIXIMAB [Suspect]
     Active Substance: INFLIXIMAB
  316. INFLIXIMAB [Suspect]
     Active Substance: INFLIXIMAB
  317. INFLIXIMAB [Suspect]
     Active Substance: INFLIXIMAB
  318. INFLIXIMAB [Suspect]
     Active Substance: INFLIXIMAB
  319. INFLIXIMAB [Suspect]
     Active Substance: INFLIXIMAB
  320. INFLIXIMAB [Suspect]
     Active Substance: INFLIXIMAB
  321. INFLIXIMAB [Suspect]
     Active Substance: INFLIXIMAB
  322. INFLIXIMAB [Suspect]
     Active Substance: INFLIXIMAB
  323. INFLIXIMAB [Suspect]
     Active Substance: INFLIXIMAB
  324. INFLIXIMAB [Suspect]
     Active Substance: INFLIXIMAB
  325. INFLIXIMAB [Suspect]
     Active Substance: INFLIXIMAB
  326. INFLIXIMAB [Suspect]
     Active Substance: INFLIXIMAB
  327. INFLIXIMAB [Suspect]
     Active Substance: INFLIXIMAB
  328. INFLIXIMAB [Suspect]
     Active Substance: INFLIXIMAB
  329. INFLIXIMAB [Suspect]
     Active Substance: INFLIXIMAB
  330. RIFAXIMIN [Suspect]
     Active Substance: RIFAXIMIN
     Indication: Product used for unknown indication
  331. RIFAXIMIN [Suspect]
     Active Substance: RIFAXIMIN
  332. RIFAXIMIN [Suspect]
     Active Substance: RIFAXIMIN
  333. RIFAXIMIN [Suspect]
     Active Substance: RIFAXIMIN
  334. RIFAXIMIN [Suspect]
     Active Substance: RIFAXIMIN
  335. RIFAXIMIN [Suspect]
     Active Substance: RIFAXIMIN
  336. RIFAXIMIN [Suspect]
     Active Substance: RIFAXIMIN
  337. RIFAXIMIN [Suspect]
     Active Substance: RIFAXIMIN
  338. RIFAXIMIN [Suspect]
     Active Substance: RIFAXIMIN
  339. RIFAXIMIN [Suspect]
     Active Substance: RIFAXIMIN
  340. RIFAXIMIN [Suspect]
     Active Substance: RIFAXIMIN
  341. RIFAXIMIN [Suspect]
     Active Substance: RIFAXIMIN
  342. RIFAXIMIN [Suspect]
     Active Substance: RIFAXIMIN
  343. RIFAXIMIN [Suspect]
     Active Substance: RIFAXIMIN
  344. RIFAXIMIN [Suspect]
     Active Substance: RIFAXIMIN
  345. RIFAXIMIN [Suspect]
     Active Substance: RIFAXIMIN
  346. RIFAXIMIN [Suspect]
     Active Substance: RIFAXIMIN
  347. RIFAXIMIN [Suspect]
     Active Substance: RIFAXIMIN
  348. RIFAXIMIN [Suspect]
     Active Substance: RIFAXIMIN
  349. RIFAXIMIN [Suspect]
     Active Substance: RIFAXIMIN
  350. RIFAXIMIN [Suspect]
     Active Substance: RIFAXIMIN
  351. RIFAXIMIN [Suspect]
     Active Substance: RIFAXIMIN
  352. RIFAXIMIN [Suspect]
     Active Substance: RIFAXIMIN
  353. RIFAXIMIN [Suspect]
     Active Substance: RIFAXIMIN
  354. RIFAXIMIN [Suspect]
     Active Substance: RIFAXIMIN
  355. RIFAXIMIN [Suspect]
     Active Substance: RIFAXIMIN
  356. RIFAXIMIN [Suspect]
     Active Substance: RIFAXIMIN
  357. RIFAXIMIN [Suspect]
     Active Substance: RIFAXIMIN
  358. RIFAXIMIN [Suspect]
     Active Substance: RIFAXIMIN
  359. RIFAXIMIN [Suspect]
     Active Substance: RIFAXIMIN
  360. RIFAXIMIN [Suspect]
     Active Substance: RIFAXIMIN
  361. RIFAXIMIN [Suspect]
     Active Substance: RIFAXIMIN
  362. RIFAXIMIN [Suspect]
     Active Substance: RIFAXIMIN
  363. RIFAXIMIN [Suspect]
     Active Substance: RIFAXIMIN
  364. RIFAXIMIN [Suspect]
     Active Substance: RIFAXIMIN
  365. RIFAXIMIN [Suspect]
     Active Substance: RIFAXIMIN
  366. RIFAXIMIN [Suspect]
     Active Substance: RIFAXIMIN
  367. RIFAXIMIN [Suspect]
     Active Substance: RIFAXIMIN
  368. RIFAXIMIN [Suspect]
     Active Substance: RIFAXIMIN
  369. RIFAXIMIN [Suspect]
     Active Substance: RIFAXIMIN
  370. USTEKINUMAB [Concomitant]
     Active Substance: USTEKINUMAB
     Dates: start: 20211112, end: 2022
  371. USTEKINUMAB [Concomitant]
     Active Substance: USTEKINUMAB
     Dates: start: 20211112, end: 2022
  372. USTEKINUMAB [Concomitant]
     Active Substance: USTEKINUMAB
     Dates: start: 20211112, end: 2022
  373. HYRIMOZ [Concomitant]
     Active Substance: ADALIMUMAB-ADAZ
     Indication: Crohn^s disease
  374. HYRIMOZ [Concomitant]
     Active Substance: ADALIMUMAB-ADAZ
     Dosage: SENSO READ PEN, HYRIMOZ SENSO-READ PEN/ HYRIMOZ PRE-FILLED SYRINGE+X100L (ADALIMUMAB).
  375. HYRIMOZ [Concomitant]
     Active Substance: ADALIMUMAB-ADAZ
     Dosage: SENSO-READ PEN, HYRIMOZ SENSO-READ PEN/ HYRIMOZ PRE-FILLED SYRINGE+X100L (ADALIMUMAB).
  376. HYRIMOZ [Concomitant]
     Active Substance: ADALIMUMAB-ADAZ
  377. HYRIMOZ [Concomitant]
     Active Substance: ADALIMUMAB-ADAZ
     Dosage: SENSO-READ PEN
  378. HYRIMOZ [Concomitant]
     Active Substance: ADALIMUMAB-ADAZ
     Dosage: HYRIMOZ SENSO-READ PEN/ HYRIMOZ PRE-FILLED SYRINGE+X100L (ADALIMUMAB)
  379. HYRIMOZ [Concomitant]
     Active Substance: ADALIMUMAB-ADAZ
     Dosage: HYRIMOZ SENSO-READ PEN/ HYRIMOZ PRE-FILLED SYRINGE+X100L
  380. HYRIMOZ [Concomitant]
     Active Substance: ADALIMUMAB-ADAZ
  381. HYRIMOZ [Concomitant]
     Active Substance: ADALIMUMAB-ADAZ
  382. HYRIMOZ [Concomitant]
     Active Substance: ADALIMUMAB-ADAZ
  383. HYRIMOZ [Concomitant]
     Active Substance: ADALIMUMAB-ADAZ
  384. ADALIMUMAB [Concomitant]
     Active Substance: ADALIMUMAB\ISOPROPYL ALCOHOL

REACTIONS (9)
  - Crohn^s disease [Unknown]
  - Frequent bowel movements [Unknown]
  - Nerve injury [Unknown]
  - Quality of life decreased [Unknown]
  - Pancreatitis [Unknown]
  - Gastrointestinal bacterial overgrowth [Unknown]
  - Pneumonia [Unknown]
  - Incontinence [Unknown]
  - Small intestinal obstruction [Unknown]

NARRATIVE: CASE EVENT DATE: 20220101
